FAERS Safety Report 7626757-4 (Version None)
Quarter: 2011Q3

REPORT INFORMATION
  Report Type: 
  Country: None (occurrence: None)
  Receive Date: 20110721
  Receipt Date: 20110708
  Transmission Date: 20111222
  Serious: Yes (Other)
  Sender: FDA-Public Use
  Company Number: FR-ELI_LILLY_AND_COMPANY-FR201107002206

PATIENT
  Sex: Female

DRUGS (3)
  1. MEDIATOR [Concomitant]
     Indication: HYPERTRIGLYCERIDAEMIA
     Dosage: 1 DF, QD
     Route: 048
     Dates: start: 20091101
  2. PROZAC [Suspect]
     Route: 048
  3. ISOMERIDE [Concomitant]
     Indication: OVERWEIGHT
     Dosage: UNK
     Route: 048
     Dates: start: 19950101

REACTIONS (3)
  - TRICUSPID VALVE INCOMPETENCE [None]
  - MITRAL VALVE INCOMPETENCE [None]
  - AORTIC VALVE INCOMPETENCE [None]
